FAERS Safety Report 20027232 (Version 1)
Quarter: 2021Q4

REPORT INFORMATION
  Report Type: Spontaneous
  Country: US (occurrence: US)
  Receive Date: 20211103
  Receipt Date: 20211103
  Transmission Date: 20220303
  Serious: Yes (Hospitalization, Other)
  Sender: FDA-Public Use
  Company Number: US-UNITED THERAPEUTICS-UNT-2021-019388

PATIENT
  Age: 34 Year
  Sex: Female

DRUGS (3)
  1. REMODULIN [Suspect]
     Active Substance: TREPROSTINIL
     Indication: Pulmonary arterial hypertension
     Dosage: UNK, CONTINUING
     Route: 041
     Dates: start: 20201005
  2. REMODULIN [Suspect]
     Active Substance: TREPROSTINIL
     Dosage: 0.0375 ?G/KG, CONTINUING
     Route: 041
  3. REMODULIN [Suspect]
     Active Substance: TREPROSTINIL
     Dosage: 0.04125 ?G/KG, CONTINUING
     Route: 041

REACTIONS (1)
  - Vascular device infection [Unknown]

NARRATIVE: CASE EVENT DATE: 20210928
